FAERS Safety Report 20499544 (Version 3)
Quarter: 2022Q2

REPORT INFORMATION
  Report Type: Spontaneous
  Country: US (occurrence: US)
  Receive Date: 20220222
  Receipt Date: 20220429
  Transmission Date: 20220721
  Serious: Yes (Hospitalization, Other)
  Sender: FDA-Public Use
  Company Number: US-AUROBINDO-AUR-APL-2022-004657

PATIENT
  Sex: Female

DRUGS (3)
  1. NAPROXEN [Suspect]
     Active Substance: NAPROXEN
     Indication: Arthralgia
     Dosage: UNK
     Route: 065
     Dates: start: 20211130
  2. NAPROXEN [Suspect]
     Active Substance: NAPROXEN
     Indication: Myalgia
  3. NAPROXEN [Suspect]
     Active Substance: NAPROXEN
     Indication: Injury

REACTIONS (13)
  - Tremor [Unknown]
  - Near death experience [Unknown]
  - Burning sensation [Not Recovered/Not Resolved]
  - Dizziness [Not Recovered/Not Resolved]
  - Dyspnoea [Unknown]
  - Headache [Not Recovered/Not Resolved]
  - Insomnia [Not Recovered/Not Resolved]
  - Pain [Not Recovered/Not Resolved]
  - Somnolence [Unknown]
  - Product colour issue [Unknown]
  - Product quality issue [Unknown]
  - Product substitution issue [Unknown]
  - Product packaging quantity issue [Unknown]

NARRATIVE: CASE EVENT DATE: 20220207
